FAERS Safety Report 5042283-3 (Version None)
Quarter: 2006Q2

REPORT INFORMATION
  Report Type: 
  Country: None (occurrence: None)
  Receive Date: 20060627
  Receipt Date: 20060609
  Transmission Date: 20061013
  Serious: Yes (Other)
  Sender: FDA-Public Use
  Company Number: BR200606002589

PATIENT
  Age: 42 Year
  Sex: Male
  Weight: 70 kg

DRUGS (6)
  1. CYMBALTA [Suspect]
     Indication: DEPRESSION
     Dosage: 60 MG DAILY (1/D) ORAL
     Route: 048
     Dates: start: 20060627
  2. CLONAZEPAM [Concomitant]
  3. MIRTAZAPINE [Concomitant]
  4. DEPAKOTE [Concomitant]
  5. DRAMIN (DIMENHYDRINATE) [Concomitant]
  6. PARACETAMOL [Concomitant]

REACTIONS (10)
  - ANOREXIA [None]
  - DIARRHOEA [None]
  - DYSPNOEA [None]
  - FEELING COLD [None]
  - LOSS OF CONSCIOUSNESS [None]
  - MUSCLE SPASMS [None]
  - PERIPHERAL COLDNESS [None]
  - VISION BLURRED [None]
  - WEIGHT DECREASED [None]
  - WHEEZING [None]
